FAERS Safety Report 25869617 (Version 1)
Quarter: 2025Q4

REPORT INFORMATION
  Report Type: Report from Study
  Country: US (occurrence: US)
  Receive Date: 20251001
  Receipt Date: 20251001
  Transmission Date: 20260118
  Serious: Yes (Other)
  Sender: ABBVIE
  Company Number: US-ABBVIE-6481141

PATIENT
  Sex: Female

DRUGS (1)
  1. LUMIGAN [Suspect]
     Active Substance: BIMATOPROST
     Indication: Product used for unknown indication
     Dosage: PATIENT ROA: OPHTHALMIC
     Route: 065

REACTIONS (7)
  - Venous operation [Unknown]
  - Malaise [Unknown]
  - Hypertension [Unknown]
  - Diabetes mellitus [Unknown]
  - Blindness [Unknown]
  - Glaucoma [Unknown]
  - Skin ulcer [Unknown]
